FAERS Safety Report 6359428-5 (Version None)
Quarter: 2009Q3

REPORT INFORMATION
  Report Type: 
  Country: None (occurrence: None)
  Receive Date: 20090917
  Receipt Date: 20090911
  Transmission Date: 20100115
  Serious: Yes (Other)
  Sender: FDA-Public Use
  Company Number: US-BAYER-200932079GPV

PATIENT
  Age: 52 Year
  Sex: Female

DRUGS (5)
  1. FLUDARABINE [Suspect]
     Indication: CHRONIC MYELOID LEUKAEMIA
  2. CYTOSINE ARABINOSIDE [Suspect]
     Indication: CHRONIC MYELOID LEUKAEMIA
  3. MITOXANTRONE [Suspect]
     Indication: CHRONIC MYELOID LEUKAEMIA
  4. AMPHOTERICIN B [Concomitant]
     Indication: FUNGAL INFECTION
  5. CASPOFUNGIN [Concomitant]
     Indication: FUNGAL INFECTION

REACTIONS (2)
  - ALVEOLAR PROTEINOSIS [None]
  - ANAL FUNGAL INFECTION [None]
